FAERS Safety Report 15126839 (Version 1)
Quarter: 2018Q3

REPORT INFORMATION
  Report Type: Spontaneous
  Country: US (occurrence: US)
  Receive Date: 20180710
  Receipt Date: 20180710
  Transmission Date: 20181010
  Serious: No
  Sender: FDA-Public Use
  Company Number: US-PERRIGO-17US027355

PATIENT
  Age: 35 Year
  Sex: Female
  Weight: 54.42 kg

DRUGS (1)
  1. MICONAZOLE 1 [Suspect]
     Active Substance: MICONAZOLE NITRATE
     Indication: TRICHOMONIASIS
     Dosage: 1200 MG, SINGLE
     Route: 067
     Dates: start: 20171010, end: 20171010

REACTIONS (4)
  - Vulvovaginal burning sensation [Recovered/Resolved]
  - Vulvovaginal erythema [Not Recovered/Not Resolved]
  - Off label use [Recovered/Resolved]
  - Vulvovaginal pruritus [Not Recovered/Not Resolved]

NARRATIVE: CASE EVENT DATE: 20171010
